FAERS Safety Report 8626541 (Version 7)
Quarter: 2012Q4

REPORT INFORMATION
  Report Type: 
  Country: JP (occurrence: JP)
  Receive Date: 20120620
  Receipt Date: 20121221
  Transmission Date: 20130627
  Serious: Yes (Death, Hospitalization)
  Sender: FDA-Public Use
  Company Number: JP-PFIZER INC-2012144387

PATIENT
  Age: 60 Year
  Sex: Female
  Weight: 74 kg

DRUGS (8)
  1. XALKORI [Suspect]
     Indication: NON-SMALL CELL LUNG CANCER
     Dosage: 250 mg, 2x/day
     Route: 048
     Dates: start: 20120429, end: 20120531
  2. XALKORI [Suspect]
     Dosage: 200 mg, single
     Route: 048
     Dates: start: 20120613, end: 20120613
  3. TAKEPRON [Concomitant]
     Dosage: 15 mg, 1x/day
     Dates: start: 20120601
  4. MAGNESIUM OXIDE [Concomitant]
     Dosage: 660 mg, 3x/day
     Dates: start: 20120601
  5. DECADRON [Concomitant]
     Indication: LYMPHANGIOSIS CARCINOMATOSA
     Dosage: 1 mg, 1x/day
     Dates: start: 20120601
  6. DECADRON [Concomitant]
     Dosage: 1 mg, 1x/day
     Route: 048
     Dates: start: 20120613, end: 20120615
  7. SENNOSIDE A+B CALCIUM [Concomitant]
     Dosage: 24 mg, 1x/day
     Dates: start: 20120601
  8. LASIX [Concomitant]
     Dosage: 20 mg, 1x/day
     Dates: start: 20120601

REACTIONS (4)
  - Interstitial lung disease [Fatal]
  - Pneumocystis jiroveci pneumonia [Recovering/Resolving]
  - Disease progression [Fatal]
  - Non-small cell lung cancer [Fatal]
